FAERS Safety Report 7796717-1 (Version None)
Quarter: 2011Q4

REPORT INFORMATION
  Report Type: 
  Country: None (occurrence: None)
  Receive Date: 20111005
  Receipt Date: 20110923
  Transmission Date: 20120403
  Serious: Yes (Other)
  Sender: FDA-Public Use
  Company Number: US-JNJFOC-20111000360

PATIENT
  Sex: Female

DRUGS (3)
  1. NUCYNTA [Suspect]
     Indication: ANALGESIC THERAPY
     Dosage: DAILY
     Route: 048
  2. NUCYNTA [Suspect]
     Dosage: TITRATED UP TO A TOTAL DAILY DOSE OF 500MG
     Route: 048
  3. ZOLOFT [Suspect]
     Indication: PRODUCT USED FOR UNKNOWN INDICATION
     Route: 048

REACTIONS (1)
  - DEPRESSION [None]
